FAERS Safety Report 17857915 (Version 1)
Quarter: 2020Q2

REPORT INFORMATION
  Report Type: Spontaneous
  Country: FR (occurrence: FR)
  Receive Date: 20200604
  Receipt Date: 20200604
  Transmission Date: 20200714
  Serious: Yes (Death, Life-Threatening, Hospitalization, Other)
  Sender: FDA-Public Use
  Company Number: FR-ALVOGEN-2020-ALVOGEN-108487

PATIENT
  Age: 72 Year
  Sex: Female

DRUGS (12)
  1. NEFOPAM [Concomitant]
     Active Substance: NEFOPAM
     Indication: PRODUCT USED FOR UNKNOWN INDICATION
  2. LEVOTHYROXINE. [Concomitant]
     Active Substance: LEVOTHYROXINE
     Indication: PRODUCT USED FOR UNKNOWN INDICATION
  3. PIPERACILLIN SODIUM/TAZOBACTAM SODIUM [Concomitant]
     Active Substance: PIPERACILLIN SODIUM\TAZOBACTAM SODIUM
     Indication: BACTERIAL INFECTION
  4. EXEMESTANE. [Suspect]
     Active Substance: EXEMESTANE
     Indication: BREAST CANCER METASTATIC
     Dates: start: 201901
  5. PREDNISOLONE. [Suspect]
     Active Substance: PREDNISOLONE
     Indication: CHEMOTHERAPY
     Dates: start: 201905, end: 2019
  6. PALBOCICLIB [Suspect]
     Active Substance: PALBOCICLIB
     Indication: BREAST CANCER METASTATIC
     Dosage: PALBOCICLIB WAS ADJUSTED FROM 125 MG TO 100 MG PER DAY
     Route: 048
     Dates: start: 2019
  7. PALBOCICLIB [Suspect]
     Active Substance: PALBOCICLIB
     Indication: BREAST CANCER METASTATIC
     Dosage: 4-WEEK CYCLES
     Route: 048
     Dates: start: 201901, end: 2019
  8. PARACETAMOL [Concomitant]
     Active Substance: ACETAMINOPHEN
     Indication: PRODUCT USED FOR UNKNOWN INDICATION
  9. DENOSUMAB [Concomitant]
     Active Substance: DENOSUMAB
     Indication: PRODUCT USED FOR UNKNOWN INDICATION
  10. LANSOPRAZOLE. [Concomitant]
     Active Substance: LANSOPRAZOLE
     Indication: PRODUCT USED FOR UNKNOWN INDICATION
  11. SULFAMETHOXAZOLE/TRIMETHOPRIM [Concomitant]
     Active Substance: SULFAMETHOXAZOLE\TRIMETHOPRIM
     Indication: PNEUMOCYSTIS JIROVECII PNEUMONIA
     Dosage: TMP 15 TO 20 MG/KG/DAY AND SMX 75 TO 100 MG/KG/DAY
  12. PREDNISOLONE. [Suspect]
     Active Substance: PREDNISOLONE
     Dates: start: 2019

REACTIONS (14)
  - Aspergillus infection [Unknown]
  - Cell-mediated immune deficiency [Fatal]
  - Cytomegalovirus infection reactivation [Fatal]
  - Leukopenia [Unknown]
  - Herpes simplex reactivation [Fatal]
  - Enterococcal infection [Unknown]
  - Parvovirus infection [Fatal]
  - Lymphopenia [Fatal]
  - Epstein-Barr virus infection reactivation [Fatal]
  - Infection reactivation [Fatal]
  - Varicella zoster virus infection [Fatal]
  - Klebsiella infection [Unknown]
  - Bone marrow failure [Fatal]
  - Pneumocystis jirovecii pneumonia [Fatal]

NARRATIVE: CASE EVENT DATE: 2019
